FAERS Safety Report 7939003-9 (Version None)
Quarter: 2011Q4

REPORT INFORMATION
  Report Type: 
  Country: None (occurrence: None)
  Receive Date: 20111124
  Receipt Date: 20111118
  Transmission Date: 20120403
  Serious: Yes (Death, Hospitalization)
  Sender: FDA-Public Use
  Company Number: GB-AMGEN-GBRCT2011057186

PATIENT
  Age: 81 Year
  Sex: Male

DRUGS (7)
  1. BLINDED DARBEPOETIN ALFA [Suspect]
     Indication: CARDIAC FAILURE
     Dosage: UNK UNK, QMO
     Route: 058
     Dates: start: 20070601
  2. SPIRONOLACTONE [Concomitant]
     Dosage: 25 MG, UNK
  3. CARVEDILOL [Concomitant]
     Dosage: 25 MG, BID
  4. FUROSEMIDE [Concomitant]
     Dosage: 40 MG, QD
  5. PLACEBO [Suspect]
     Indication: CARDIAC FAILURE
     Dosage: UNK UNK, QMO
     Route: 058
     Dates: start: 20070601
  6. ENALAPRIL MALEATE [Concomitant]
     Dosage: 10 MG, BID
  7. LEVOTHYROXINE SODIUM [Concomitant]
     Dosage: 100 MUG, UNK

REACTIONS (1)
  - CONFUSIONAL STATE [None]
